FAERS Safety Report 24227163 (Version 1)
Quarter: 2024Q3

REPORT INFORMATION
  Report Type: Spontaneous
  Country: US (occurrence: US)
  Receive Date: 20240820
  Receipt Date: 20240820
  Transmission Date: 20241017
  Serious: Yes (Other)
  Sender: MYLAN
  Company Number: US-MYLANLABS-2024M1075620

PATIENT
  Age: 54 Year
  Sex: Male

DRUGS (8)
  1. BACLOFEN [Suspect]
     Active Substance: BACLOFEN
     Indication: Drug detoxification
     Dosage: 80 MILLIGRAM, QD
     Route: 065
  2. 4-AMINO-3-PHENYLBUTYRIC ACID [Suspect]
     Active Substance: 4-AMINO-3-PHENYLBUTYRIC ACID
     Indication: Performance enhancing product use
     Dosage: 8 GRAM, QD
     Route: 065
  3. 4-AMINO-3-PHENYLBUTYRIC ACID [Suspect]
     Active Substance: 4-AMINO-3-PHENYLBUTYRIC ACID
     Dosage: 14 GRAM, QD
     Route: 065
  4. LORAZEPAM [Concomitant]
     Active Substance: LORAZEPAM
     Indication: Withdrawal syndrome
     Dosage: 3 MILLIGRAM, QD
     Route: 065
  5. LORAZEPAM [Concomitant]
     Active Substance: LORAZEPAM
     Dosage: 6 MILLIGRAM, QD
     Route: 065
  6. LORAZEPAM [Concomitant]
     Active Substance: LORAZEPAM
     Dosage: 24 MILLIGRAM, QD
     Route: 065
  7. GABAPENTIN [Concomitant]
     Active Substance: GABAPENTIN
     Indication: Withdrawal syndrome
     Dosage: 900 MILLIGRAM, QD
     Route: 065
  8. CLONIDINE [Concomitant]
     Active Substance: CLONIDINE
     Indication: Withdrawal syndrome
     Dosage: 0.3 MILLIGRAM, QD
     Route: 065

REACTIONS (5)
  - Irritability [Unknown]
  - Anxiety [Unknown]
  - Withdrawal syndrome [Recovering/Resolving]
  - Drug dependence [Unknown]
  - Off label use [Unknown]
